FAERS Safety Report 4845965-9 (Version None)
Quarter: 2005Q4

REPORT INFORMATION
  Report Type: 
  Country: None (occurrence: None)
  Receive Date: 20051201
  Receipt Date: 20051016
  Transmission Date: 20060501
  Serious: Yes (Death)
  Sender: FDA-Public Use
  Company Number: 2005142617

PATIENT
  Age: 73 Year
  Sex: Male

DRUGS (6)
  1. CARDURA [Suspect]
     Indication: BENIGN PROSTATIC HYPERPLASIA
     Dosage: 1 MG (1 MG), ORAL
     Route: 048
     Dates: start: 20050917, end: 20050917
  2. DIGOXIN [Concomitant]
  3. CORDARONE [Concomitant]
  4. LASILIX (FUROSEMIDE) [Concomitant]
  5. INSULIN [Concomitant]
  6. HYDROCORTISONE [Concomitant]

REACTIONS (1)
  - MYOCARDIAL INFARCTION [None]
